FAERS Safety Report 9023601 (Version 2)
Quarter: 2013Q1

REPORT INFORMATION
  Report Type: Spontaneous
  Country: ES (occurrence: ES)
  Receive Date: 20130121
  Receipt Date: 20130321
  Transmission Date: 20140127
  Serious: Yes (Disabling)
  Sender: FDA-Public Use
  Company Number: PHHY2013ES004081

PATIENT
  Age: 95 Year
  Sex: Female
  Weight: 55 kg

DRUGS (8)
  1. CO-DIOVAN [Suspect]
     Indication: HYPERTENSION
     Dosage: 1 DF, (160 MG VALS/ 12.5 MG HYDRO) QD
     Route: 048
     Dates: start: 20080116, end: 20121011
  2. RISPERIDONE [Suspect]
     Indication: ABNORMAL BEHAVIOUR
     Dosage: 1 MG, UNK
     Route: 048
     Dates: start: 20120621
  3. RISPERIDONE [Suspect]
     Dosage: 0.5 MG, UNK
     Route: 048
     Dates: start: 20120702, end: 20120918
  4. RISPERIDONE [Suspect]
     Dosage: 0.5 MG, QD
     Route: 048
     Dates: start: 20121024, end: 20121106
  5. RISPERIDONE [Suspect]
     Dosage: UNK UKN, UNK
     Dates: start: 20130111, end: 20130121
  6. LORAZEPAM [Suspect]
     Indication: INSOMNIA
     Dosage: 1 MG, QD
     Route: 048
     Dates: start: 20120605
  7. PARACETAMOL [Concomitant]
     Indication: PAIN
     Dosage: 500 MG, WHEN NEEDED
     Route: 048
     Dates: start: 20090619
  8. PANTOPRAZOLE [Concomitant]
     Indication: GASTRITIS PROPHYLAXIS
     Dosage: 20 MG, UNK
     Route: 048
     Dates: start: 20080710

REACTIONS (6)
  - Cerebrovascular accident [Recovered/Resolved]
  - Gait disturbance [Not Recovered/Not Resolved]
  - Tremor [Not Recovered/Not Resolved]
  - Aphasia [Unknown]
  - Catatonia [Not Recovered/Not Resolved]
  - Syncope [Unknown]
